FAERS Safety Report 6159237-6 (Version None)
Quarter: 2009Q2

REPORT INFORMATION
  Report Type: 
  Country: None (occurrence: None)
  Receive Date: 20090417
  Receipt Date: 20090415
  Transmission Date: 20091009
  Serious: Yes (Hospitalization)
  Sender: FDA-Public Use
  Company Number: CA-JNJFOC-20090402142

PATIENT
  Age: 78 Year
  Sex: Female

DRUGS (8)
  1. REMINYL ER [Suspect]
     Route: 065
  2. REMINYL ER [Suspect]
     Indication: DRUG USE FOR UNKNOWN INDICATION
     Route: 065
  3. SYNTHROID [Concomitant]
  4. PAXIL [Concomitant]
  5. ATIVAN [Concomitant]
  6. ALENDRONATE SODIUM [Concomitant]
  7. ANTIBIOTIC [Concomitant]
  8. VITAMIN B-12 [Concomitant]

REACTIONS (2)
  - CLOSTRIDIUM DIFFICILE COLITIS [None]
  - HAEMOGLOBIN DECREASED [None]
